FAERS Safety Report 7430304-X (Version None)
Quarter: 2011Q2

REPORT INFORMATION
  Report Type: 
  Country: None (occurrence: None)
  Receive Date: 20110421
  Receipt Date: 20110411
  Transmission Date: 20111010
  Serious: Yes (Hospitalization, Other)
  Sender: FDA-Public Use
  Company Number: IT-ELI_LILLY_AND_COMPANY-IT201104004208

PATIENT
  Age: 41 Year
  Sex: Female

DRUGS (4)
  1. VINORELBINE [Concomitant]
     Indication: PLEURAL MESOTHELIOMA MALIGNANT
     Dosage: UNK, UNKNOWN
  2. PEMETREXED [Suspect]
     Indication: PLEURAL MESOTHELIOMA MALIGNANT
     Dosage: UNK, UNKNOWN
  3. GEMCITABINE HYDROCHLORIDE [Suspect]
     Indication: PLEURAL MESOTHELIOMA MALIGNANT
     Dosage: UNK, UNKNOWN
  4. CARBOPLATIN [Concomitant]
     Indication: PLEURAL MESOTHELIOMA MALIGNANT
     Dosage: UNK, UNKNOWN

REACTIONS (7)
  - CHEST PAIN [None]
  - DRUG INEFFECTIVE [None]
  - INTESTINAL OBSTRUCTION [None]
  - DYSPNOEA [None]
  - NEOPLASM MALIGNANT [None]
  - CONSTIPATION [None]
  - DYSPHAGIA [None]
